FAERS Safety Report 13876176 (Version 8)
Quarter: 2021Q2

REPORT INFORMATION
  Report Type: Spontaneous
  Country: US (occurrence: US)
  Receive Date: 20170817
  Receipt Date: 20210629
  Transmission Date: 20210716
  Serious: Yes (Hospitalization)
  Sender: FDA-Public Use
  Company Number: US-PFIZER INC-2017353692

PATIENT
  Age: 73 Year
  Sex: Female

DRUGS (5)
  1. PREMARIN [Suspect]
     Active Substance: ESTROGENS, CONJUGATED
     Dosage: UNK, 2X/WEEK (INSERT 0.5 APPLICATORFUL EVERY DAY CYCLICALLY, FOR 1 WK THEN TWICE A WEEK THERE AFTER)
     Route: 067
  2. PREMARIN [Suspect]
     Active Substance: ESTROGENS, CONJUGATED
     Indication: PAIN
     Dosage: 0.625 MG, DAILY (EVERY DAY FOR TWO WEEKS)
     Route: 067
  3. PREMARIN [Suspect]
     Active Substance: ESTROGENS, CONJUGATED
     Indication: VULVOVAGINAL DRYNESS
     Dosage: UNK (FOR SIX WEEKS)
  4. PREMARIN [Suspect]
     Active Substance: ESTROGENS, CONJUGATED
     Dosage: 0.625 MG, 2X/WEEK
     Route: 067
     Dates: start: 201710
  5. PREMARIN [Suspect]
     Active Substance: ESTROGENS, CONJUGATED
     Dosage: UNK, CYCLIC (INSERT 0.5 APPLICATORFUL EVERY DAY CYCLICALLY, FOR 1 WK THEN TWICE A WEEK THERE AFTER)
     Route: 067

REACTIONS (3)
  - Off label use [Unknown]
  - Product use issue [Unknown]
  - Drug ineffective [Not Recovered/Not Resolved]

NARRATIVE: CASE EVENT DATE: 201702
